FAERS Safety Report 9687623 (Version 1)
Quarter: 2013Q4

REPORT INFORMATION
  Report Type: Spontaneous
  Country: US (occurrence: None)
  Receive Date: 20131113
  Receipt Date: 20131113
  Transmission Date: 20140711
  Serious: Yes (Hospitalization)
  Sender: FDA-Public Use
  Company Number: None

PATIENT
  Age: 70 Year
  Sex: Female
  Weight: 64 kg

DRUGS (4)
  1. RITUXAN [Suspect]
     Route: 042
  2. DECADRON [Concomitant]
  3. PEPCID [Concomitant]
  4. BENADRYL [Concomitant]

REACTIONS (4)
  - Chills [None]
  - Tachycardia [None]
  - Infusion related reaction [None]
  - Oxygen saturation decreased [None]
